FAERS Safety Report 21593251 (Version 1)
Quarter: 2022Q4

REPORT INFORMATION
  Report Type: Spontaneous
  Country: US (occurrence: None)
  Receive Date: 20221111
  Receipt Date: 20221111
  Transmission Date: 20230113
  Serious: Yes (Hospitalization)
  Sender: FDA-Public Use
  Company Number: None

PATIENT
  Sex: Male

DRUGS (1)
  1. SUNITINIB [Suspect]
     Active Substance: SUNITINIB
     Dosage: 50 DAILY ORAL?
     Route: 048

REACTIONS (7)
  - Hypotension [None]
  - Heart rate increased [None]
  - Dyspnoea [None]
  - Therapy interrupted [None]
  - Diarrhoea [None]
  - Nausea [None]
  - Cardiac disorder [None]
